FAERS Safety Report 8837807 (Version 1)
Quarter: 2012Q4

REPORT INFORMATION
  Report Type: 
  Country: US (occurrence: US)
  Receive Date: 20121012
  Receipt Date: 20121012
  Transmission Date: 20130627
  Serious: No
  Sender: FDA-Public Use
  Company Number: US-GLAXOSMITHKLINE-A0989881A

PATIENT
  Age: 66 Year
  Sex: Male

DRUGS (5)
  1. JALYN [Suspect]
     Indication: BENIGN PROSTATIC HYPERPLASIA
     Route: 048
     Dates: start: 2011
  2. BLOOD PRESSURE MEDICATION [Concomitant]
  3. LIPITOR [Concomitant]
  4. BENICAR [Concomitant]
  5. METOPROLOL [Concomitant]

REACTIONS (1)
  - Dyspepsia [Unknown]
